FAERS Safety Report 6147086-4 (Version None)
Quarter: 2009Q2

REPORT INFORMATION
  Report Type: 
  Country: None (occurrence: None)
  Receive Date: 20090407
  Receipt Date: 20090326
  Transmission Date: 20091009
  Serious: Yes (Disabling)
  Sender: FDA-Public Use
  Company Number: ZA-MERCK-0903ZAF00032

PATIENT
  Age: 54 Year
  Sex: Female
  Weight: 50 kg

DRUGS (4)
  1. FOSAMAX [Suspect]
     Indication: OSTEOPOROSIS
     Route: 048
     Dates: start: 20040101, end: 20060101
  2. ASCORBIC ACID [Concomitant]
     Indication: ROUTINE HEALTH MAINTENANCE
     Route: 048
  3. ASCORBIC ACID [Concomitant]
     Route: 048
  4. ALENDRONATE SODIUM AND CHOLECALCIFEROL [Suspect]
     Indication: OSTEOPOROSIS
     Route: 048
     Dates: start: 20090201

REACTIONS (3)
  - BONE DENSITY DECREASED [None]
  - HEADACHE [None]
  - MIGRAINE [None]
